FAERS Safety Report 14147368 (Version 2)
Quarter: 2017Q4

REPORT INFORMATION
  Report Type: Spontaneous
  Country: JP (occurrence: JP)
  Receive Date: 20171031
  Receipt Date: 20171129
  Transmission Date: 20180321
  Serious: Yes (Other)
  Sender: FDA-Public Use
  Company Number: PHJP2017JP032061

PATIENT
  Age: 75 Year
  Sex: Female

DRUGS (1)
  1. ZOMETA [Suspect]
     Active Substance: ZOLEDRONIC ACID
     Indication: METASTASES TO BONE
     Dosage: UNK
     Route: 041
     Dates: start: 200803

REACTIONS (5)
  - Subdural empyema [Unknown]
  - Altered state of consciousness [Unknown]
  - Hemiplegia [Unknown]
  - Brain abscess [Unknown]
  - Osteonecrosis of jaw [Recovering/Resolving]

NARRATIVE: CASE EVENT DATE: 201108
